FAERS Safety Report 8571934-1 (Version None)
Quarter: 2012Q3

REPORT INFORMATION
  Report Type: 
  Country: None (occurrence: None)
  Receive Date: 20120806
  Receipt Date: 20120729
  Transmission Date: 20120928
  Serious: Yes (Other)
  Sender: FDA-Public Use
  Company Number: US-PFIZER INC-2012185578

PATIENT
  Age: 10 Year
  Sex: Female

DRUGS (1)
  1. PHENYTOIN [Suspect]

REACTIONS (7)
  - RENAL FAILURE [None]
  - EOSINOPHILIA [None]
  - NEPHRITIS [None]
  - DERMATITIS EXFOLIATIVE [None]
  - TOXIC EPIDERMAL NECROLYSIS [None]
  - HEPATITIS [None]
  - LYMPHADENOPATHY [None]
